FAERS Safety Report 13667306 (Version 1)
Quarter: 2017Q2

REPORT INFORMATION
  Report Type: Spontaneous
  Country: TW (occurrence: TW)
  Receive Date: 20170619
  Receipt Date: 20170619
  Transmission Date: 20170830
  Serious: Yes (Other)
  Sender: FDA-Public Use
  Company Number: TW-ROCHE-1950437

PATIENT
  Age: 61 Year
  Sex: Female

DRUGS (1)
  1. RIBAVIRIN. [Suspect]
     Active Substance: RIBAVIRIN
     Indication: HEPATITIS C
     Route: 065
     Dates: start: 2012

REACTIONS (4)
  - Hepatic fibrosis [Unknown]
  - Hepatic cirrhosis [Unknown]
  - Renal impairment [Unknown]
  - Drug ineffective [Unknown]
